FAERS Safety Report 8216181-8 (Version None)
Quarter: 2012Q1

REPORT INFORMATION
  Report Type: 
  Country: None (occurrence: None)
  Receive Date: 20120316
  Receipt Date: 20120307
  Transmission Date: 20120608
  Serious: Yes (Hospitalization, Other)
  Sender: FDA-Public Use
  Company Number: US-GLAXOSMITHKLINE-A0965273A

PATIENT
  Sex: Female

DRUGS (3)
  1. HEPARIN [Suspect]
     Route: 065
     Dates: start: 20120101
  2. IMMUNE GLOBULIN INTRAVENOUS (HUMAN) [Concomitant]
  3. PROMACTA [Suspect]
     Indication: PRODUCT USED FOR UNKNOWN INDICATION
     Dosage: 75MG PER DAY
     Route: 048
     Dates: start: 20090101

REACTIONS (5)
  - PORTAL VEIN THROMBOSIS [None]
  - PLATELET COUNT DECREASED [None]
  - PLATELET COUNT INCREASED [None]
  - THROMBOCYTOPENIA [None]
  - ABDOMINAL PAIN [None]
